FAERS Safety Report 20111645 (Version 1)
Quarter: 2021Q4

REPORT INFORMATION
  Report Type: Report from Study
  Country: US (occurrence: US)
  Receive Date: 20211125
  Receipt Date: 20211125
  Transmission Date: 20220303
  Serious: No
  Sender: FDA-Public Use
  Company Number: US-BIOVITRUM-2021US4546

PATIENT
  Age: 76 Year
  Sex: Female

DRUGS (1)
  1. KINERET [Suspect]
     Active Substance: ANAKINRA
     Indication: Gout
     Route: 058

REACTIONS (7)
  - Pain [Unknown]
  - Pyrexia [Unknown]
  - Unevaluable event [Unknown]
  - Localised infection [Unknown]
  - Contusion [Unknown]
  - Product dose omission issue [Unknown]
  - Off label use [Not Recovered/Not Resolved]

NARRATIVE: CASE EVENT DATE: 20200216
